FAERS Safety Report 7369799-9 (Version None)
Quarter: 2011Q1

REPORT INFORMATION
  Report Type: 
  Country: None (occurrence: None)
  Receive Date: 20110318
  Receipt Date: 20110318
  Transmission Date: 20110831
  Serious: Yes (Life-Threatening, Hospitalization)
  Sender: FDA-Public Use
  Company Number: None

PATIENT
  Age: 60 Year
  Sex: Male
  Weight: 110.9 kg

DRUGS (1)
  1. METFORMIN HCL [Suspect]
     Indication: DIABETES MELLITUS
     Dosage: 1000 MG BID PO
     Route: 048
     Dates: start: 20071130, end: 20110309

REACTIONS (8)
  - MALAISE [None]
  - COUGH [None]
  - BLOOD POTASSIUM INCREASED [None]
  - ASTHENIA [None]
  - BLOOD UREA INCREASED [None]
  - DYSPNOEA [None]
  - BLOOD CREATININE INCREASED [None]
  - RESPIRATORY DEPRESSION [None]
